FAERS Safety Report 7131677 (Version 10)
Quarter: 2013Q2

REPORT INFORMATION
  Report Type: Report from Study
  Country: US (occurrence: US)
  Receive Date: 20090925
  Receipt Date: 20130612
  Transmission Date: 20140414
  Serious: Yes (Hospitalization, Other)
  Sender: FDA-Public Use
  Company Number: US-RB-020655-09

PATIENT
  Age: 63 Year
  Sex: Female
  Weight: 69 kg

DRUGS (13)
  1. SUBOXONE [Suspect]
     Indication: DRUG DEPENDENCE
     Dosage: TOOK 3-4 TABLETS/DAILY
     Route: 048
     Dates: start: 2007, end: 2009
  2. SUBOXONE [Suspect]
     Indication: PAIN
     Route: 048
     Dates: start: 200812, end: 20100111
  3. SUBOXONE [Suspect]
     Route: 048
     Dates: start: 2009
  4. SUBUTEX [Suspect]
     Indication: DRUG DEPENDENCE
     Route: 065
  5. BENADRYL [Suspect]
     Indication: PRODUCT USED FOR UNKNOWN INDICATION
     Dosage: DOSING INFORMATION UNKNOWN
     Route: 042
     Dates: start: 20091228, end: 20091228
  6. LOPRESSOR [Concomitant]
     Indication: HYPERTENSION
     Route: 065
  7. LIPITOR [Concomitant]
     Indication: BLOOD CHOLESTEROL ABNORMAL
     Route: 048
     Dates: start: 2003
  8. LIPITOR [Concomitant]
     Indication: BLOOD TRIGLYCERIDES INCREASED
     Route: 048
     Dates: start: 2003
  9. CARAFATE [Concomitant]
     Indication: HIATUS HERNIA
     Dosage: DOSING DETAILS UNKNOWN
     Route: 048
     Dates: start: 2012
  10. MYLANTA [Concomitant]
     Indication: HIATUS HERNIA
     Dosage: DOSING DETAILS UNKNOWN
     Route: 048
  11. TUMS [Concomitant]
     Indication: HIATUS HERNIA
     Dosage: DOSING DETAILS UNKNOWN
     Route: 048
  12. PREVACID [Concomitant]
     Indication: HIATUS HERNIA
     Dosage: DOSING DETAILS UNKNOWN
     Route: 048
  13. TRAZODONE [Concomitant]
     Indication: INSOMNIA
     Dosage: TAKING AT NIGHT
     Route: 048
     Dates: start: 2011

REACTIONS (21)
  - Septic shock [Recovered/Resolved]
  - Sepsis [Recovered/Resolved]
  - Cardiac arrest [Recovered/Resolved]
  - Thrombosis [Recovered/Resolved]
  - Transient ischaemic attack [Recovered/Resolved]
  - Pneumonia [Recovered/Resolved]
  - Aortic aneurysm [Recovered/Resolved]
  - Pericardial effusion [Recovered/Resolved]
  - Bacterial infection [Recovered/Resolved]
  - Stress fracture [Recovered/Resolved]
  - Incorrect route of drug administration [Recovered/Resolved]
  - Pyrexia [Recovered/Resolved]
  - Disorientation [Recovered/Resolved]
  - Tongue discolouration [Recovered/Resolved]
  - Vomiting [Recovered/Resolved]
  - Lung disorder [Not Recovered/Not Resolved]
  - Agitation [Recovered/Resolved]
  - Nausea [Not Recovered/Not Resolved]
  - Drug withdrawal syndrome [Recovered/Resolved]
  - Irritability [Not Recovered/Not Resolved]
  - Feeling of body temperature change [Not Recovered/Not Resolved]
